FAERS Safety Report 4322264-5 (Version None)
Quarter: 2004Q1

REPORT INFORMATION
  Report Type: 
  Country: None (occurrence: None)
  Receive Date: 20040319
  Receipt Date: 20040303
  Transmission Date: 20041129
  Serious: Yes (Death, Life-Threatening, Hospitalization)
  Sender: FDA-Public Use
  Company Number: F01200400286

PATIENT
  Age: 63 Year
  Sex: Female

DRUGS (8)
  1. (OXALIPLATIN) - SOLUTION - 233 MG [Suspect]
     Indication: COLON CANCER
     Dosage: 233 MG Q3W INTRAVENOUS NOS
     Route: 042
     Dates: start: 20040120, end: 20040120
  2. (CAPECITABINE) - TABLET - 1800 MG [Suspect]
     Dosage: 1800 MG TWICE A DAY PER ORAL FROM D1 TO D15
     Route: 048
     Dates: start: 20040120, end: 20040202
  3. WELLBUTRIN [Concomitant]
  4. PROZAC [Concomitant]
  5. LEVOTHROID [Concomitant]
  6. CALTRATE (CALICUM CARBONATE) [Concomitant]
  7. COUMADIN [Concomitant]
  8. UNKNOWN DRUG (GENERIC COMPONENT UNKNOWN) [Concomitant]

REACTIONS (10)
  - ACIDOSIS [None]
  - BLOOD PRESSURE DECREASED [None]
  - CANDIDIASIS [None]
  - DEHYDRATION [None]
  - DIARRHOEA [None]
  - ENCEPHALOPATHY [None]
  - ILEUS [None]
  - MUCOSAL INFLAMMATION [None]
  - RENAL FAILURE [None]
  - SEPSIS [None]
